FAERS Safety Report 10314291 (Version 1)
Quarter: 2014Q3

REPORT INFORMATION
  Report Type: Spontaneous
  Country: MX (occurrence: MX)
  Receive Date: 20140718
  Receipt Date: 20140718
  Transmission Date: 20150326
  Serious: Yes (Disabling, Other)
  Sender: FDA-Public Use
  Company Number: MX-GLAXOSMITHKLINE-A1081499A

PATIENT
  Age: 23 Year
  Sex: Male

DRUGS (1)
  1. VOTRIENT [Suspect]
     Active Substance: PAZOPANIB HYDROCHLORIDE
     Indication: SYNOVIAL SARCOMA
     Dosage: 800MG PER DAY
     Route: 065

REACTIONS (3)
  - Graft complication [Unknown]
  - Extremity necrosis [Unknown]
  - Off label use [Unknown]
